FAERS Safety Report 11259627 (Version 1)
Quarter: 2015Q3

REPORT INFORMATION
  Report Type: Spontaneous
  Country: US (occurrence: US)
  Receive Date: 20150710
  Receipt Date: 20150710
  Transmission Date: 20151125
  Serious: No
  Sender: FDA-Public Use
  Company Number: US-MALLINCKRODT-T201403196

PATIENT
  Age: 46 Year
  Sex: Male
  Weight: 86.17 kg

DRUGS (3)
  1. HYDROCODONE BITARTRATE AND ACETAMINOPHEN [Concomitant]
     Active Substance: ACETAMINOPHEN\HYDROCODONE BITARTRATE
     Indication: BREAKTHROUGH PAIN
     Dosage: 1 TAB, BID
  2. MORPHINE [Suspect]
     Active Substance: MORPHINE
     Dosage: 30 MG, BID; TOOK 2 TABS ON 6-8 OCCASIONS
     Route: 048
     Dates: start: 201408, end: 201408
  3. MORPHINE [Suspect]
     Active Substance: MORPHINE
     Indication: BACK PAIN
     Dosage: 30 MG, BID
     Route: 048
     Dates: start: 20140731, end: 20140824

REACTIONS (3)
  - Intentional product use issue [Recovered/Resolved]
  - Drug effect decreased [Recovered/Resolved]
  - Somnolence [Recovered/Resolved]

NARRATIVE: CASE EVENT DATE: 201408
